FAERS Safety Report 11031578 (Version 2)
Quarter: 2015Q2

REPORT INFORMATION
  Report Type: Spontaneous
  Country: JP (occurrence: JP)
  Receive Date: 20150415
  Receipt Date: 20150427
  Transmission Date: 20150821
  Serious: Yes (Death)
  Sender: FDA-Public Use
  Company Number: JP-ROCHE-1564489

PATIENT
  Age: 72 Year
  Sex: Female

DRUGS (1)
  1. GRTPA [Suspect]
     Active Substance: ALTEPLASE
     Indication: CEREBRAL INFARCTION
     Route: 042

REACTIONS (2)
  - Aortic dissection [Fatal]
  - Cardiac tamponade [Fatal]
